FAERS Safety Report 19415103 (Version 1)
Quarter: 2021Q2

REPORT INFORMATION
  Report Type: Report from Study
  Country: BR (occurrence: BR)
  Receive Date: 20210614
  Receipt Date: 20210614
  Transmission Date: 20210717
  Serious: Yes (Death, Hospitalization, Disabling, Other)
  Sender: FDA-Public Use
  Company Number: BR-TAKEDA-2021TUS036851

PATIENT
  Sex: Male

DRUGS (1)
  1. IDURSULFASE [Suspect]
     Active Substance: IDURSULFASE
     Indication: MUCOPOLYSACCHARIDOSIS II
     Dosage: UNK
     Route: 042

REACTIONS (6)
  - Aphasia [Unknown]
  - Adverse drug reaction [Unknown]
  - Product administration interrupted [Unknown]
  - Walking disability [Unknown]
  - Vein rupture [Fatal]
  - Hydrocephalus [Fatal]
